FAERS Safety Report 7378102-X (Version None)
Quarter: 2011Q1

REPORT INFORMATION
  Report Type: 
  Country: None (occurrence: None)
  Receive Date: 20110328
  Receipt Date: 20110324
  Transmission Date: 20110831
  Serious: Yes (Hospitalization)
  Sender: FDA-Public Use
  Company Number: US-ROXANE LABORATORIES, INC.-2011-RO-00405RO

PATIENT
  Age: 33 Year
  Sex: Male

DRUGS (4)
  1. FLUOXETINE [Suspect]
     Indication: DEPRESSED MOOD
     Dosage: 80 MG
     Route: 048
  2. DIAZEPAM [Suspect]
  3. SERTRALINE HYDROCHLORIDE [Suspect]
     Dosage: 100 MG
  4. FLUOXETINE [Suspect]
     Indication: ADJUSTMENT DISORDER
     Dosage: 20 MG
     Route: 048

REACTIONS (2)
  - SEROTONIN SYNDROME [None]
  - HAEMATEMESIS [None]
